FAERS Safety Report 5952493-6 (Version None)
Quarter: 2008Q4

REPORT INFORMATION
  Report Type: 
  Country: None (occurrence: None)
  Receive Date: 20081113
  Receipt Date: 20081104
  Transmission Date: 20090506
  Serious: Yes (Other)
  Sender: FDA-Public Use
  Company Number: US-PFIZER INC-2008093118

PATIENT
  Sex: Male
  Weight: 59 kg

DRUGS (4)
  1. GEODON [Suspect]
     Indication: SCHIZOPHRENIA
  2. DEPAKOTE [Concomitant]
  3. AMBIEN [Concomitant]
  4. PALIPERIDONE [Concomitant]

REACTIONS (5)
  - AGGRESSION [None]
  - ANGER [None]
  - DRUG INTOLERANCE [None]
  - PERSONALITY CHANGE [None]
  - SCHIZOPHRENIA [None]
